FAERS Safety Report 7503130-0 (Version None)
Quarter: 2011Q2

REPORT INFORMATION
  Report Type: 
  Country: None (occurrence: None)
  Receive Date: 20110525
  Receipt Date: 20110520
  Transmission Date: 20111010
  Serious: Yes (Other)
  Sender: FDA-Public Use
  Company Number: FR-PFIZER INC-2011109754

PATIENT
  Age: 34 Year
  Sex: Female

DRUGS (4)
  1. METHERGINE [Interacting]
     Indication: INTRA-UTERINE DEATH
  2. CYTOTEC [Interacting]
     Indication: INTRA-UTERINE DEATH
  3. METHERGINE [Interacting]
     Indication: LABOUR INDUCTION
  4. CYTOTEC [Suspect]
     Indication: LABOUR INDUCTION
     Route: 067

REACTIONS (8)
  - OFF LABEL USE [None]
  - HYSTERECTOMY [None]
  - POSTOPERATIVE RENAL FAILURE [None]
  - NECROBIOSIS [None]
  - DRUG INTERACTION [None]
  - SEPTIC SHOCK [None]
  - RENAL TRANSPLANT [None]
  - KIDNEY TRANSPLANT REJECTION [None]
